FAERS Safety Report 12735007 (Version 2)
Quarter: 2018Q3

REPORT INFORMATION
  Report Type: Spontaneous
  Country: US (occurrence: US)
  Receive Date: 20160912
  Receipt Date: 20180816
  Transmission Date: 20181010
  Serious: Yes (Death, Hospitalization, Other)
  Sender: FDA-Public Use
  Company Number: US-JNJFOC-20160711634

PATIENT
  Sex: Female

DRUGS (1)
  1. XARELTO [Suspect]
     Active Substance: RIVAROXABAN
     Indication: THROMBOSIS
     Route: 048
     Dates: start: 20140201, end: 201404

REACTIONS (3)
  - Gastrointestinal haemorrhage [Fatal]
  - Ulcer haemorrhage [Fatal]
  - Haemorrhage [Unknown]

NARRATIVE: CASE EVENT DATE: 201404
